FAERS Safety Report 9770949 (Version 2)
Quarter: 2014Q1

REPORT INFORMATION
  Report Type: Spontaneous
  Country: CL (occurrence: CL)
  Receive Date: 20131218
  Receipt Date: 20140128
  Transmission Date: 20141002
  Serious: No
  Sender: FDA-Public Use
  Company Number: CL-PFIZER INC-2013357209

PATIENT
  Age: 57 Year
  Sex: Male

DRUGS (3)
  1. XALATAN [Suspect]
     Indication: GLAUCOMA
     Dosage: 1 DROP PER EYE AT 9:00 PM EVERY DAY
     Route: 047
     Dates: start: 2007
  2. METFORMIN [Concomitant]
     Dosage: 1 TABLET PER DAY
     Dates: start: 201212
  3. ATORVASTATIN [Concomitant]
     Dosage: 20 MG, 2X/WEEK OR 3X/WEEK
     Route: 048
     Dates: start: 2013

REACTIONS (4)
  - Ocular icterus [Not Recovered/Not Resolved]
  - Glucose tolerance impaired [Not Recovered/Not Resolved]
  - Blood cholesterol abnormal [Not Recovered/Not Resolved]
  - Blood triglycerides abnormal [Not Recovered/Not Resolved]
